FAERS Safety Report 16822364 (Version 1)
Quarter: 2019Q4

REPORT INFORMATION
  Report Type: Spontaneous
  Country: US (occurrence: US)
  Receive Date: 20190918
  Receipt Date: 20190918
  Transmission Date: 20200122
  Serious: Yes (Disabling)
  Sender: FDA-Public Use
  Company Number: None

PATIENT
  Age: 66 Year
  Sex: Female
  Weight: 81 kg

DRUGS (1)
  1. PROLIA [Suspect]
     Active Substance: DENOSUMAB
     Indication: OSTEOPOROSIS
     Dosage: ?          OTHER FREQUENCY:TWICE A YEAR;?
     Route: 058
     Dates: start: 20190206, end: 20190904

REACTIONS (5)
  - Myalgia [None]
  - Bone pain [None]
  - Fatigue [None]
  - Muscle tightness [None]
  - Gait disturbance [None]

NARRATIVE: CASE EVENT DATE: 20190911
